FAERS Safety Report 15803024 (Version 1)
Quarter: 2019Q1

REPORT INFORMATION
  Report Type: Spontaneous
  Country: JP (occurrence: JP)
  Receive Date: 20190109
  Receipt Date: 20190109
  Transmission Date: 20190417
  Serious: Yes (Hospitalization, Other)
  Sender: FDA-Public Use
  Company Number: JP-CASPER PHARMA LLC-2018CAS000371

PATIENT
  Age: 75 Year
  Sex: Female

DRUGS (1)
  1. NEOMYCIN, POLYMYXIN, BACITRACIN, HC [Suspect]
     Active Substance: BACITRACIN ZINC\HYDROCORTISONE\NEOMYCIN SULFATE\POLYMYXIN B SULFATE
     Indication: SECONDARY ADRENOCORTICAL INSUFFICIENCY
     Dosage: 25 MILLIGRAM, QD
     Route: 065

REACTIONS (3)
  - Intentional product use issue [Unknown]
  - Product use in unapproved indication [Unknown]
  - Hyperadrenocorticism [Recovering/Resolving]
